FAERS Safety Report 13850339 (Version 3)
Quarter: 2017Q4

REPORT INFORMATION
  Report Type: Spontaneous
  Country: JP (occurrence: JP)
  Receive Date: 20170809
  Receipt Date: 20171024
  Transmission Date: 20180320
  Serious: Yes (Hospitalization)
  Sender: FDA-Public Use
  Company Number: JP-ELI_LILLY_AND_COMPANY-JP201708002321

PATIENT
  Age: 14 Year
  Sex: Female
  Weight: 38.5 kg

DRUGS (3)
  1. ESTRANA [Suspect]
     Active Substance: ESTRADIOL
     Dosage: UNK
     Route: 062
     Dates: start: 20170526, end: 20170723
  2. ESTRANA [Suspect]
     Active Substance: ESTRADIOL
     Indication: HYPOGONADISM
     Dosage: UNK
     Route: 062
     Dates: start: 20161228, end: 20170525
  3. HUMATROPE [Suspect]
     Active Substance: SOMATROPIN
     Indication: TURNER^S SYNDROME
     Dosage: UNK UNK, DAILY
     Route: 058
     Dates: start: 20140404, end: 20170723

REACTIONS (1)
  - B precursor type acute leukaemia [Recovering/Resolving]

NARRATIVE: CASE EVENT DATE: 20170607
